FAERS Safety Report 8681807 (Version 3)
Quarter: 2013Q4

REPORT INFORMATION
  Report Type: Spontaneous
  Country: US (occurrence: US)
  Receive Date: 20120725
  Receipt Date: 20131101
  Transmission Date: 20140711
  Serious: No
  Sender: FDA-Public Use
  Company Number: US-009507513-2012SP028367

PATIENT
  Sex: Female

DRUGS (1)
  1. PREGNYL [Suspect]
     Indication: OVULATION INDUCTION
     Dosage: 5000 IU, UNK

REACTIONS (1)
  - Drug ineffective [Unknown]
